FAERS Safety Report 10268209 (Version 2)
Quarter: 2014Q2

REPORT INFORMATION
  Report Type: Report from Study
  Country: DE (occurrence: DE)
  Receive Date: 20140630
  Receipt Date: 20140630
  Transmission Date: 20141212
  Serious: Yes (Other)
  Sender: FDA-Public Use
  Company Number: PHHO2009DE05772

PATIENT
  Sex: 0

DRUGS (5)
  1. SOM230 [Suspect]
     Indication: ACROMEGALY
     Dosage: 900 UG, BID
     Route: 058
     Dates: start: 20090317, end: 20090405
  2. SOM230 [Suspect]
     Dosage: UNK
     Dates: start: 20090407
  3. PRESOMEN [Concomitant]
  4. GENOTROPIN [Concomitant]
  5. IUD NOS [Concomitant]

REACTIONS (9)
  - Adrenal insufficiency [Recovered/Resolved]
  - Nausea [Recovered/Resolved]
  - Decreased appetite [Recovered/Resolved]
  - Headache [Recovered/Resolved]
  - Fatigue [Recovered/Resolved]
  - Vomiting [Recovered/Resolved]
  - Somnolence [Recovered/Resolved]
  - Confusional state [Recovered/Resolved]
  - Crying [Recovered/Resolved]
